APPROVED DRUG PRODUCT: LUMIGAN
Active Ingredient: BIMATOPROST
Strength: 0.03% **Federal Register determination that product was not discontinued or withdrawn for safety or effectiveness reasons**
Dosage Form/Route: SOLUTION/DROPS;OPHTHALMIC
Application: N021275 | Product #001
Applicant: ABBVIE INC
Approved: Mar 16, 2001 | RLD: Yes | RS: No | Type: DISCN